FAERS Safety Report 5807310-1 (Version None)
Quarter: 2008Q3

REPORT INFORMATION
  Report Type: 
  Country: None (occurrence: None)
  Receive Date: 20080709
  Receipt Date: 20080709
  Transmission Date: 20090109
  Serious: Yes (Other)
  Sender: FDA-Public Use
  Company Number: None

PATIENT
  Age: 62 Year
  Sex: Female
  Weight: 77.1115 kg

DRUGS (2)
  1. ARIMIDEX [Suspect]
     Indication: BREAST CANCER
     Dosage: 1 MG 1 DAILY PO, ABOUT A YEAR
     Route: 048
     Dates: start: 20070801, end: 20080627
  2. ARIMIDEX [Suspect]
     Indication: BREAST CANCER
     Dosage: 1 MG 1 DAILY PO, ABOUT A YEAR
     Route: 048
     Dates: end: 20080628

REACTIONS (1)
  - VISION BLURRED [None]
